FAERS Safety Report 9353460 (Version 1)
Quarter: 2013Q2

REPORT INFORMATION
  Report Type: Spontaneous
  Country: IL (occurrence: IL)
  Receive Date: 20130618
  Receipt Date: 20130618
  Transmission Date: 20140414
  Serious: Yes (Other)
  Sender: FDA-Public Use
  Company Number: IL-009507513-1306ISR006589

PATIENT
  Sex: Male

DRUGS (1)
  1. ONCOTICE [Suspect]

REACTIONS (2)
  - Orchidectomy [Not Recovered/Not Resolved]
  - Orchitis [Not Recovered/Not Resolved]
